FAERS Safety Report 6150780-2 (Version None)
Quarter: 2009Q2

REPORT INFORMATION
  Report Type: 
  Country: None (occurrence: None)
  Receive Date: 20090408
  Receipt Date: 20090330
  Transmission Date: 20091009
  Serious: Yes (Hospitalization)
  Sender: FDA-Public Use
  Company Number: 2009SP006893

PATIENT
  Age: 50 Year
  Sex: Female
  Weight: 99.8 kg

DRUGS (4)
  1. TEMODAR [Suspect]
     Indication: LYMPHOMA
     Dosage: 1000 MG; PO
     Route: 048
     Dates: start: 20090309, end: 20090313
  2. METHOTREXATE [Suspect]
     Indication: LYMPHOMA
     Dosage: 7000 MG
     Dates: start: 20090216
  3. METHOTREXATE [Suspect]
     Indication: LYMPHOMA
     Dosage: 7000 MG
     Dates: start: 20090302
  4. RITUXIMAB [Suspect]
     Indication: LYMPHOMA
     Dosage: 785 MG
     Dates: start: 20090213, end: 20090213

REACTIONS (3)
  - HAEMOGLOBIN DECREASED [None]
  - INCISION SITE PAIN [None]
  - INCISIONAL DRAINAGE [None]
